FAERS Safety Report 12071408 (Version 2)
Quarter: 2016Q1

REPORT INFORMATION
  Report Type: Spontaneous
  Country: IT (occurrence: IT)
  Receive Date: 20160211
  Receipt Date: 20160219
  Transmission Date: 20160526
  Serious: Yes (Other)
  Sender: FDA-Public Use
  Company Number: IT-HOSPIRA-3159893

PATIENT
  Age: 76 Year
  Sex: Female
  Weight: 44 kg

DRUGS (3)
  1. RAMUCIRUMAB [Suspect]
     Active Substance: RAMUCIRUMAB
     Indication: GASTRIC CANCER
     Route: 042
     Dates: start: 20151001, end: 20160121
  2. PACLITAXEL. [Suspect]
     Active Substance: PACLITAXEL
     Indication: GASTRIC CANCER
     Route: 042
     Dates: start: 20151001, end: 20160121
  3. RAMIPRIL. [Concomitant]
     Active Substance: RAMIPRIL
     Indication: HYPERTENSION
     Dosage: IN CONTINUOUS THERAPY
     Route: 048

REACTIONS (1)
  - Perforation [Not Recovered/Not Resolved]

NARRATIVE: CASE EVENT DATE: 20160127
